FAERS Safety Report 17111398 (Version 1)
Quarter: 2019Q4

REPORT INFORMATION
  Report Type: Spontaneous
  Country: ES (occurrence: ES)
  Receive Date: 20191204
  Receipt Date: 20191204
  Transmission Date: 20200122
  Serious: Yes (Death)
  Sender: FDA-Public Use
  Company Number: ES-ROCHE-2485554

PATIENT
  Age: 83 Year
  Sex: Female
  Weight: 73 kg

DRUGS (11)
  1. PREDNISONA [Concomitant]
     Active Substance: PREDNISONE
  2. LEFLUNOMIDA [Concomitant]
     Active Substance: LEFLUNOMIDE
  3. LEVOTIROXINA [LEVOTHYROXINE] [Concomitant]
  4. ENALAPRIL [Concomitant]
     Active Substance: ENALAPRIL
  5. LACTULOSA [Concomitant]
     Active Substance: LACTULOSE
  6. FUROSEMIDA [FUROSEMIDE] [Concomitant]
     Active Substance: FUROSEMIDE
  7. PENTOXIFILINA [Concomitant]
     Active Substance: PENTOXIFYLLINE
  8. ROACTEMRA [Suspect]
     Active Substance: TOCILIZUMAB
     Indication: RHEUMATOID ARTHRITIS
     Dosage: ON 17/JUL/2019, RECEIVED MOST RECENT DOSE OF TOCILIZUMAB
     Route: 058
     Dates: start: 20190509
  9. METAMIZOL [Concomitant]
     Active Substance: METAMIZOLE SODIUM
  10. DURFENTA [Concomitant]
  11. ACFOL [Concomitant]
     Active Substance: FOLIC ACID

REACTIONS (1)
  - Peripheral ischaemia [Fatal]

NARRATIVE: CASE EVENT DATE: 20190717
